FAERS Safety Report 18486325 (Version 1)
Quarter: 2020Q4

REPORT INFORMATION
  Report Type: Spontaneous
  Country: US (occurrence: US)
  Receive Date: 20201110
  Receipt Date: 20201110
  Transmission Date: 20210114
  Serious: No
  Sender: FDA-Public Use
  Company Number: None

PATIENT
  Age: 59 Year
  Sex: Male
  Weight: 70.31 kg

DRUGS (1)
  1. DEXAMETHASONE (DEXAMETHASONE 4MG TAB) [Suspect]
     Active Substance: DEXAMETHASONE
     Indication: PAIN
     Route: 048
     Dates: start: 20200904, end: 20201004

REACTIONS (2)
  - Seizure [None]
  - Agitation [None]

NARRATIVE: CASE EVENT DATE: 20201029
